FAERS Safety Report 15082464 (Version 1)
Quarter: 2018Q2

REPORT INFORMATION
  Report Type: Spontaneous
  Country: US (occurrence: US)
  Receive Date: 20180628
  Receipt Date: 20180628
  Transmission Date: 20180711
  Serious: Yes (Other)
  Sender: FDA-Public Use
  Company Number: US-BRACCO-2018US03312

PATIENT
  Age: 26 Year
  Sex: Female

DRUGS (2)
  1. HEPARIN [Concomitant]
     Active Substance: HEPARIN SODIUM
     Indication: THROMBOLYSIS
     Dosage: UNK
     Route: 042
     Dates: start: 201806, end: 20180619
  2. LUMASON [Suspect]
     Active Substance: SULFUR HEXAFLUORIDE
     Indication: ECHOCARDIOGRAM
     Dosage: UNK UNK, SINGLE
     Dates: start: 20180619, end: 20180619

REACTIONS (7)
  - Pulseless electrical activity [Recovered/Resolved]
  - Choking sensation [Unknown]
  - Seizure [Unknown]
  - Hypotension [Unknown]
  - Cyanosis [Unknown]
  - Dyspnoea [Unknown]
  - Nausea [Unknown]

NARRATIVE: CASE EVENT DATE: 20180619
